FAERS Safety Report 8464254-7 (Version None)
Quarter: 2012Q2

REPORT INFORMATION
  Report Type: 
  Country: None (occurrence: None)
  Receive Date: 20120625
  Receipt Date: 20120619
  Transmission Date: 20120825
  Serious: Yes (Life-Threatening, Hospitalization)
  Sender: FDA-Public Use
  Company Number: FR-PFIZER INC-2012146829

PATIENT
  Age: 68 Year
  Sex: Female

DRUGS (2)
  1. MEDROL [Suspect]
     Dosage: 32 MG, 1X/DAY
     Route: 048
     Dates: start: 20120329, end: 20120101
  2. TEMODAL [Suspect]
     Indication: GLIOBLASTOMA
     Dosage: 75 MG/M2, UNK
     Route: 048
     Dates: start: 20120329, end: 20120101

REACTIONS (1)
  - PNEUMOCYSTIS JIROVECI PNEUMONIA [None]
